FAERS Safety Report 25408326 (Version 1)
Quarter: 2025Q2

REPORT INFORMATION
  Report Type: Spontaneous
  Country: US (occurrence: US)
  Receive Date: 20250606
  Receipt Date: 20250606
  Transmission Date: 20250716
  Serious: No
  Sender: SANOFI AVENTIS
  Company Number: US-SA-2025SA160908

PATIENT
  Age: 88 Year
  Sex: Female

DRUGS (10)
  1. DUPIXENT [Suspect]
     Active Substance: DUPILUMAB
     Indication: Dermatitis atopic
     Dosage: 300 MG, QOW
     Route: 058
     Dates: start: 20200520
  2. ALEVE [Concomitant]
     Active Substance: NAPROXEN SODIUM
  3. BETAMETHASONE DIPROPIONATE [Concomitant]
     Active Substance: BETAMETHASONE DIPROPIONATE
  4. PREDNISONE [Concomitant]
     Active Substance: PREDNISONE
  5. TRIAMTERENE [Concomitant]
     Active Substance: TRIAMTERENE
  6. LEVOTHYROXINE [Concomitant]
     Active Substance: LEVOTHYROXINE
  7. TACROLIMUS [Concomitant]
     Active Substance: TACROLIMUS
  8. FLUOROURACIL [Concomitant]
     Active Substance: FLUOROURACIL
  9. MUPIROCIN [Concomitant]
     Active Substance: MUPIROCIN
  10. CITALOPRAM HYDROBROMIDE [Concomitant]
     Active Substance: CITALOPRAM HYDROBROMIDE

REACTIONS (1)
  - Inappropriate schedule of product administration [Unknown]

NARRATIVE: CASE EVENT DATE: 20250604
